FAERS Safety Report 7105755-3 (Version None)
Quarter: 2010Q4

REPORT INFORMATION
  Report Type: 
  Country: None (occurrence: None)
  Receive Date: 20101116
  Receipt Date: 20101104
  Transmission Date: 20110411
  Serious: Yes (Hospitalization)
  Sender: FDA-Public Use
  Company Number: GB-TEVA-254858ISR

PATIENT
  Weight: 1.864 kg

DRUGS (1)
  1. COPAXONE [Suspect]
     Route: 065

REACTIONS (1)
  - FEEDING DISORDER NEONATAL [None]
